FAERS Safety Report 13977430 (Version 2)
Quarter: 2017Q4

REPORT INFORMATION
  Report Type: Report from Study
  Country: CR (occurrence: CR)
  Receive Date: 20170915
  Receipt Date: 20171017
  Transmission Date: 20180321
  Serious: Yes (Other)
  Sender: FDA-Public Use
  Company Number: PHHY2017CR132506

PATIENT
  Sex: Male
  Weight: 90 kg

DRUGS (3)
  1. TASIGNA [Suspect]
     Active Substance: NILOTINIB
     Indication: CHRONIC MYELOID LEUKAEMIA
     Dosage: 400 MG, BID
     Route: 048
     Dates: start: 20170831
  2. GLIVEC [Suspect]
     Active Substance: IMATINIB MESYLATE
     Indication: PRODUCT USED FOR UNKNOWN INDICATION
     Route: 065
  3. MICARDIS [Concomitant]
     Active Substance: TELMISARTAN
     Indication: PRODUCT USED FOR UNKNOWN INDICATION
     Dosage: 80/5 MG
     Route: 048

REACTIONS (11)
  - Peripheral swelling [Recovered/Resolved]
  - Benign prostatic hyperplasia [Unknown]
  - Drug ineffective [Unknown]
  - Blood cholesterol increased [Recovered/Resolved]
  - Nausea [Recovered/Resolved]
  - Decreased appetite [Recovered/Resolved]
  - Constipation [Recovering/Resolving]
  - Pruritus [Recovering/Resolving]
  - Haemoglobin decreased [Unknown]
  - Lip dry [Recovered/Resolved]
  - Eczema [Recovering/Resolving]
